FAERS Safety Report 23668570 (Version 1)
Quarter: 2024Q1

REPORT INFORMATION
  Report Type: Spontaneous
  Country: US (occurrence: None)
  Receive Date: 20240322
  Receipt Date: 20240322
  Transmission Date: 20240410
  Serious: Yes (Hospitalization)
  Sender: FDA-Public Use
  Company Number: None

PATIENT
  Age: 45 Year
  Sex: Male

DRUGS (2)
  1. TACROLIMUS [Suspect]
     Active Substance: TACROLIMUS
     Indication: Physical examination
     Dosage: FREQUENCY : TWICE A DAY;?
  2. TACROLIMUS [Suspect]
     Active Substance: TACROLIMUS
     Indication: Accident at work

REACTIONS (1)
  - Gastrointestinal disorder [None]
